FAERS Safety Report 18596908 (Version 2)
Quarter: 2020Q4

REPORT INFORMATION
  Report Type: Spontaneous
  Country: RO (occurrence: RO)
  Receive Date: 20201209
  Receipt Date: 20201230
  Transmission Date: 20210114
  Serious: Yes (Other)
  Sender: FDA-Public Use
  Company Number: NVSC2020RO323176

PATIENT
  Age: 51 Year
  Sex: Female
  Weight: 58 kg

DRUGS (4)
  1. LETROZOL [Concomitant]
     Active Substance: LETROZOLE
     Indication: BREAST CANCER
     Dosage: 2.5 MG, QD
     Route: 048
     Dates: start: 20200812, end: 20201202
  2. KISQALI [Suspect]
     Active Substance: RIBOCICLIB
     Indication: BREAST CANCER
     Dosage: 600 MG, QD (21 DAYS)
     Route: 048
     Dates: start: 20201012, end: 20201120
  3. IASIBON [Concomitant]
     Active Substance: IBANDRONATE SODIUM
     Indication: BREAST CANCER
     Dosage: 50 MG, QD
     Route: 048
     Dates: start: 20200812, end: 20201202
  4. KISQALI [Suspect]
     Active Substance: RIBOCICLIB
     Indication: BREAST CANCER METASTATIC
     Dosage: 600 MG, QD
     Route: 048
     Dates: start: 202010

REACTIONS (3)
  - Rash [Not Recovered/Not Resolved]
  - Necrosis [Recovered/Resolved with Sequelae]
  - Expired product administered [Unknown]

NARRATIVE: CASE EVENT DATE: 20201120
